FAERS Safety Report 14808929 (Version 3)
Quarter: 2018Q2

REPORT INFORMATION
  Report Type: Spontaneous
  Country: US (occurrence: US)
  Receive Date: 20180425
  Receipt Date: 20180607
  Transmission Date: 20180711
  Serious: Yes (Other)
  Sender: FDA-Public Use
  Company Number: US-GLAXOSMITHKLINE-US2018070959

PATIENT
  Sex: Female

DRUGS (10)
  1. INCRUSE ELLIPTA [Suspect]
     Active Substance: UMECLIDINIUM BROMIDE
     Indication: ASTHMA
  2. MONTELUKAST [Concomitant]
     Active Substance: MONTELUKAST SODIUM
  3. BREO ELLIPTA [Suspect]
     Active Substance: FLUTICASONE FUROATE\VILANTEROL TRIFENATATE
     Dates: end: 20180405
  4. AMOXICILLIN. [Concomitant]
     Active Substance: AMOXICILLIN
  5. WARFARIN [Concomitant]
     Active Substance: WARFARIN
  6. MELATONIN [Concomitant]
     Active Substance: MELATONIN
  7. SPIRIVA [Concomitant]
     Active Substance: TIOTROPIUM BROMIDE MONOHYDRATE
  8. HYDROCHLOROQUINE (MEDICATION UNKNOWN) [Concomitant]
  9. INCRUSE ELLIPTA [Suspect]
     Active Substance: UMECLIDINIUM BROMIDE
     Indication: CHRONIC OBSTRUCTIVE PULMONARY DISEASE
     Dosage: 1 PUFF(S), QD
     Route: 055
     Dates: start: 20180406
  10. SYNTHROID [Concomitant]
     Active Substance: LEVOTHYROXINE SODIUM

REACTIONS (4)
  - Dyspnoea [Unknown]
  - Product quality issue [Unknown]
  - Cough [Unknown]
  - Cataract [Unknown]
